FAERS Safety Report 9523345 (Version 2)
Quarter: 2013Q3

REPORT INFORMATION
  Report Type: Report from Study
  Country: EC (occurrence: EC)
  Receive Date: 20130913
  Receipt Date: 20130920
  Transmission Date: 20140515
  Serious: Yes (Hospitalization)
  Sender: FDA-Public Use
  Company Number: PHHY2013EC101638

PATIENT
  Age: 56 Year
  Sex: Female

DRUGS (5)
  1. ACLASTA [Suspect]
     Indication: OSTEOPOROSIS
     Dosage: 5 MG/100 ML STAT, YEARLY
     Route: 042
     Dates: start: 20130908
  2. DICLOFENAC [Concomitant]
     Dosage: UNK UKN, UNK
  3. TRAMADOL [Concomitant]
     Dosage: UNK UKN, UNK
  4. ETORICOXIB [Concomitant]
     Dosage: UNK UKN, UNK
  5. VITAMIN B12 [Concomitant]
     Dosage: UNK UKN, UNK

REACTIONS (7)
  - Hypotension [Recovered/Resolved]
  - Influenza like illness [Recovered/Resolved]
  - Pyrexia [Recovered/Resolved]
  - Hyperhidrosis [Recovered/Resolved]
  - Pain [Recovered/Resolved]
  - Chills [Recovered/Resolved]
  - Nasal congestion [Recovered/Resolved]
